FAERS Safety Report 24463357 (Version 1)
Quarter: 2024Q4

REPORT INFORMATION
  Report Type: Report from Study
  Country: US (occurrence: US)
  Receive Date: 20241018
  Receipt Date: 20241018
  Transmission Date: 20250114
  Serious: No
  Sender: ROCHE
  Company Number: US-ROCHE-2787211

PATIENT
  Age: 57 Year
  Sex: Female
  Weight: 66.68 kg

DRUGS (27)
  1. XOLAIR [Suspect]
     Active Substance: OMALIZUMAB
     Indication: Idiopathic urticaria
     Dosage: MOST RECENT DOSE ON 15/DEC/2020
     Route: 058
  2. XOLAIR [Suspect]
     Active Substance: OMALIZUMAB
  3. TESTOSTERONE [Concomitant]
     Active Substance: TESTOSTERONE
  4. PROGESTERONE [Concomitant]
     Active Substance: PROGESTERONE
     Route: 067
  5. ESTROGENS, CONJUGATED [Concomitant]
     Active Substance: ESTROGENS, CONJUGATED
     Route: 048
  6. TYROSINE [Concomitant]
     Active Substance: TYROSINE
     Route: 048
  7. PRASTERONE [Concomitant]
     Active Substance: PRASTERONE
     Route: 048
  8. BUTYRIC ACID [Concomitant]
     Active Substance: BUTYRIC ACID
  9. IODINE [Concomitant]
     Active Substance: IODINE
  10. THYROID [Concomitant]
     Active Substance: LEVOTHYROXINE\LIOTHYRONINE
     Route: 048
  11. MUCINEX [Concomitant]
     Active Substance: GUAIFENESIN
     Route: 048
  12. CETIRIZINE HYDROCHLORIDE [Concomitant]
     Active Substance: CETIRIZINE HYDROCHLORIDE
     Route: 048
  13. PEPCID [Concomitant]
     Active Substance: FAMOTIDINE
     Route: 048
  14. PREDNISONE [Concomitant]
     Active Substance: PREDNISONE
     Route: 048
  15. HYDROXYZINE HYDROCHLORIDE [Concomitant]
     Active Substance: HYDROXYZINE HYDROCHLORIDE
     Route: 048
  16. TRIAMCINOLONE ACETONIDE [Concomitant]
     Active Substance: TRIAMCINOLONE ACETONIDE
     Route: 061
  17. EPINEPHRINE [Concomitant]
     Active Substance: EPINEPHRINE
     Indication: Dyspnoea
  18. EPINEPHRINE [Concomitant]
     Active Substance: EPINEPHRINE
     Indication: Chest discomfort
  19. EPINEPHRINE [Concomitant]
     Active Substance: EPINEPHRINE
     Indication: Swollen tongue
  20. EPINEPHRINE [Concomitant]
     Active Substance: EPINEPHRINE
     Indication: Pharyngeal swelling
  21. EPINEPHRINE [Concomitant]
     Active Substance: EPINEPHRINE
     Indication: Dysphagia
  22. EPINEPHRINE [Concomitant]
     Active Substance: EPINEPHRINE
     Indication: Dyspnoea
  23. EPINEPHRINE [Concomitant]
     Active Substance: EPINEPHRINE
     Indication: Dizziness
  24. EPINEPHRINE [Concomitant]
     Active Substance: EPINEPHRINE
     Indication: Blood pressure decreased
  25. VENTOLIN [Concomitant]
     Active Substance: ALBUTEROL SULFATE
     Route: 050
  26. MONTELUKAST [Concomitant]
     Active Substance: MONTELUKAST
     Dosage: FREQUENCY TEXT:IN EVENING
     Route: 048
  27. BENADRYL OTC [Concomitant]
     Dosage: 12.5 MG/5ML

REACTIONS (1)
  - Allergic sinusitis [Unknown]
